FAERS Safety Report 16683197 (Version 1)
Quarter: 2019Q3

REPORT INFORMATION
  Report Type: Spontaneous
  Country: US (occurrence: US)
  Receive Date: 20190807
  Receipt Date: 20190807
  Transmission Date: 20191007
  Serious: Yes (Hospitalization, Other)
  Sender: FDA-Public Use
  Company Number: None

PATIENT
  Age: 54 Year
  Sex: Female
  Weight: 72 kg

DRUGS (3)
  1. ZOLPIDEM TARTRATE 10 MG TABLET [Suspect]
     Active Substance: ZOLPIDEM TARTRATE
     Indication: INSOMNIA
     Dosage: ?          QUANTITY:1 TABLET(S);?
     Route: 048
     Dates: start: 20181025, end: 20190803
  2. MULTI-PURPOSE VITAMINS WITH EXTRA C AND D [Concomitant]
  3. UNISOM SLEEPTABS [Concomitant]
     Active Substance: DOXYLAMINE SUCCINATE

REACTIONS (10)
  - Fatigue [None]
  - Dyspnoea [None]
  - Product substitution issue [None]
  - Feeling hot [None]
  - Chills [None]
  - Malaise [None]
  - Suspected product quality issue [None]
  - Dizziness [None]
  - Palpitations [None]
  - Arthralgia [None]

NARRATIVE: CASE EVENT DATE: 20181025
